FAERS Safety Report 6582405-6 (Version None)
Quarter: 2010Q1

REPORT INFORMATION
  Report Type: 
  Country: None (occurrence: None)
  Receive Date: 20100216
  Receipt Date: 20100208
  Transmission Date: 20100710
  Serious: Yes (Other)
  Sender: FDA-Public Use
  Company Number: US-B.I. PHARMACEUTICALS,INC./RIDGEFIELD-2010-BP-01554BP

PATIENT
  Age: 54 Year
  Sex: Female

DRUGS (4)
  1. MICARDIS [Suspect]
     Indication: HYPERTENSION
     Dosage: 40 MG
     Route: 048
     Dates: start: 20040101
  2. ZOCOR [Suspect]
     Indication: BLOOD CHOLESTEROL INCREASED
     Dates: start: 20091201
  3. VENTOLIN [Concomitant]
     Indication: ASTHMA
  4. CLARITIN [Concomitant]
     Indication: BLOOD IMMUNOGLOBULIN E INCREASED

REACTIONS (2)
  - BACK PAIN [None]
  - PANCREATITIS [None]
